FAERS Safety Report 7183716-6 (Version None)
Quarter: 2010Q4

REPORT INFORMATION
  Report Type: 
  Country: None (occurrence: None)
  Receive Date: 20101220
  Receipt Date: 20101220
  Transmission Date: 20110411
  Serious: Yes (Hospitalization)
  Sender: FDA-Public Use
  Company Number: None

PATIENT
  Age: 86 Year
  Sex: Female
  Weight: 81.36 kg

DRUGS (20)
  1. OMNIPAQUE 300 [Suspect]
     Indication: SCAN WITH CONTRAST
     Dosage: 125MG ONCE IV RECENT (7/8)
     Route: 042
  2. ALLOPURINOL [Concomitant]
  3. RISPERDAL [Concomitant]
  4. HYDRALAZINE HCL [Concomitant]
  5. VITAMIN B-12 [Concomitant]
  6. CLONIDINE [Concomitant]
  7. LASIX [Concomitant]
  8. PHENOBARBITAL TAB [Concomitant]
  9. ZANTAC [Concomitant]
  10. IMDUR [Concomitant]
  11. COLACE [Concomitant]
  12. ASA [Concomitant]
  13. ALDACTONE [Concomitant]
  14. FOLATE [Concomitant]
  15. FEOSOL [Concomitant]
  16. LEXAPRO [Concomitant]
  17. VERAPAMIL [Concomitant]
  18. TEKTURNA [Concomitant]
  19. METOPROLOL [Concomitant]
  20. ALBUTEROL [Concomitant]

REACTIONS (1)
  - RENAL FAILURE ACUTE [None]
